FAERS Safety Report 9804115 (Version 8)
Quarter: 2015Q1

REPORT INFORMATION
  Report Type: Spontaneous
  Country: US (occurrence: US)
  Receive Date: 20140108
  Receipt Date: 20150324
  Transmission Date: 20150721
  Serious: Yes (Hospitalization, Disabling)
  Sender: FDA-Public Use
  Company Number: US-009507513-1109USA02459

PATIENT
  Sex: Male
  Weight: 123.36 kg

DRUGS (5)
  1. PROPECIA [Suspect]
     Active Substance: FINASTERIDE
     Indication: ANDROGENETIC ALOPECIA
     Dosage: 1 MG, UNK
     Route: 048
     Dates: start: 1998
  2. PROPECIA [Suspect]
     Active Substance: FINASTERIDE
     Indication: ALOPECIA
  3. FINASTERIDE. [Suspect]
     Active Substance: FINASTERIDE
     Dosage: 5 MG/CUT IN QUARTERS
     Route: 048
     Dates: start: 20120801
  4. FINASTERIDE. [Suspect]
     Active Substance: FINASTERIDE
     Dosage: 5 MG,  1/2 TABLET DAILY
     Route: 048
     Dates: start: 20131127, end: 20141121
  5. FINASTERIDE. [Suspect]
     Active Substance: FINASTERIDE
     Indication: ALOPECIA
     Dosage: 5 MG/CUT IN QUARTERS, UNK
     Route: 048
     Dates: start: 2010, end: 201208

REACTIONS (27)
  - Cough [Recovered/Resolved]
  - Influenza like illness [Recovered/Resolved]
  - Vitamin D deficiency [Unknown]
  - Thyroid disorder [Unknown]
  - Hyperhidrosis [Unknown]
  - Blood pressure increased [Unknown]
  - Amnesia [Unknown]
  - Libido decreased [Unknown]
  - Sexual dysfunction [Not Recovered/Not Resolved]
  - Acquired mixed hyperlipidaemia [Unknown]
  - Hand fracture [Unknown]
  - Sleep disorder [Unknown]
  - Depression [Unknown]
  - Suture insertion [Unknown]
  - Attention deficit/hyperactivity disorder [Unknown]
  - Exposure to unspecified agent [Unknown]
  - Drug administration error [Unknown]
  - Erectile dysfunction [Unknown]
  - Wrong technique in drug usage process [Unknown]
  - Nasal congestion [Unknown]
  - Urine ketone body [Recovered/Resolved]
  - Poor quality sleep [Unknown]
  - Emotional distress [Not Recovered/Not Resolved]
  - Anxiety [Not Recovered/Not Resolved]
  - Bipolar disorder [Unknown]
  - Night sweats [Unknown]
  - Wrong technique in drug usage process [Unknown]

NARRATIVE: CASE EVENT DATE: 2003
